FAERS Safety Report 24331264 (Version 1)
Quarter: 2024Q3

REPORT INFORMATION
  Report Type: Spontaneous
  Country: CA (occurrence: None)
  Receive Date: 20240918
  Receipt Date: 20240918
  Transmission Date: 20241017
  Serious: Yes (Other)
  Sender: ASTRAZENECA
  Company Number: 2024A212343

PATIENT
  Age: 65 Year
  Sex: Female
  Weight: 34 kg

DRUGS (40)
  1. ROPIVACAINE HYDROCHLORIDE [Suspect]
     Active Substance: ROPIVACAINE HYDROCHLORIDE
     Indication: Product used for unknown indication
     Dosage: UNK
  2. ROSUVASTATIN CALCIUM [Suspect]
     Active Substance: ROSUVASTATIN CALCIUM
     Indication: Product used for unknown indication
     Dosage: UNK
  3. ACETAMINOPHEN [Suspect]
     Active Substance: ACETAMINOPHEN
     Indication: Product used for unknown indication
     Dosage: UNK
  4. ASPIRIN [Suspect]
     Active Substance: ASPIRIN
     Indication: Product used for unknown indication
  5. ADVAIR HFA [Suspect]
     Active Substance: FLUTICASONE PROPIONATE\SALMETEROL XINAFOATE
     Indication: Product used for unknown indication
     Dosage: UNK
  6. AMLODIPINE [Suspect]
     Active Substance: AMLODIPINE BESYLATE
     Indication: Product used for unknown indication
  7. BECLOMETHASONE [Suspect]
     Active Substance: BECLOMETHASONE
     Indication: Product used for unknown indication
     Dosage: UNK
  8. CALCIUM [Suspect]
     Active Substance: CALCIUM
     Indication: Product used for unknown indication
     Dosage: UNK
  9. CIPROFLOXACIN [Suspect]
     Active Substance: CIPROFLOXACIN
     Indication: Product used for unknown indication
     Dosage: UNK
  10. CALCIUM CARBONATE [Suspect]
     Active Substance: CALCIUM CARBONATE
     Indication: Product used for unknown indication
     Dosage: UNK
  11. CIPROFLOXACIN HYDROCHLORIDE [Suspect]
     Active Substance: CIPROFLOXACIN HYDROCHLORIDE
     Indication: Product used for unknown indication
     Dosage: UNK
  12. CLONAZEPAM [Suspect]
     Active Substance: CLONAZEPAM
     Indication: Product used for unknown indication
     Dosage: UNK
  13. CLONAZEPAM [Suspect]
     Active Substance: CLONAZEPAM
     Indication: Product used for unknown indication
     Dosage: UNK
  14. ERGOCALCIFEROL [Suspect]
     Active Substance: ERGOCALCIFEROL
     Indication: Product used for unknown indication
     Dosage: UNK
  15. ERGOCALCIFEROL [Suspect]
     Active Substance: ERGOCALCIFEROL
     Indication: Product used for unknown indication
     Dosage: UNK
  16. ERGOCALCIFEROL [Suspect]
     Active Substance: ERGOCALCIFEROL
     Indication: Product used for unknown indication
     Dosage: UNK
  17. FLUTICASONE PROPIONATE [Suspect]
     Active Substance: FLUTICASONE PROPIONATE
     Indication: Product used for unknown indication
     Dosage: UNK
  18. FOLATE SODIUM [Suspect]
     Active Substance: FOLATE SODIUM
     Indication: Product used for unknown indication
     Dosage: UNK
  19. FOLIC ACID [Suspect]
     Active Substance: FOLIC ACID
     Indication: Product used for unknown indication
     Dosage: UNK
  20. HYDROMORPHONE HYDROCHLORIDE [Suspect]
     Active Substance: HYDROMORPHONE HYDROCHLORIDE
     Indication: Product used for unknown indication
     Dosage: UNK
  21. MOXIFLOXACIN [Suspect]
     Active Substance: MOXIFLOXACIN
     Indication: Product used for unknown indication
     Dosage: UNK
  22. MOXIFLOXACIN [Suspect]
     Active Substance: MOXIFLOXACIN
     Indication: Product used for unknown indication
     Dosage: 150 MILLIGRAM
  23. OMALIZUMAB [Suspect]
     Active Substance: OMALIZUMAB
     Indication: Product used for unknown indication
     Dosage: UNK
  24. OMALIZUMAB [Suspect]
     Active Substance: OMALIZUMAB
     Indication: Asthma
     Dosage: UNK
  25. OMALIZUMAB [Suspect]
     Active Substance: OMALIZUMAB
     Indication: Product used for unknown indication
     Dosage: 150 MILLIGRAM
  26. OMALIZUMAB [Suspect]
     Active Substance: OMALIZUMAB
     Indication: Asthma
     Dosage: 150 MILLIGRAM
  27. OMALIZUMAB [Suspect]
     Active Substance: OMALIZUMAB
     Indication: Product used for unknown indication
     Dosage: 150 MILLIGRAM
  28. OMALIZUMAB [Suspect]
     Active Substance: OMALIZUMAB
     Indication: Asthma
     Dosage: 150 MILLIGRAM
  29. OMALIZUMAB [Suspect]
     Active Substance: OMALIZUMAB
     Indication: Product used for unknown indication
     Dosage: 150 MILLIGRAM
  30. OMALIZUMAB [Suspect]
     Active Substance: OMALIZUMAB
     Indication: Asthma
     Dosage: 150 MILLIGRAM
  31. PREDNISONE [Suspect]
     Active Substance: PREDNISONE
     Indication: Product used for unknown indication
     Dosage: UNK
  32. RISEDRONATE SODIUM [Suspect]
     Active Substance: RISEDRONATE SODIUM
     Indication: Product used for unknown indication
     Dosage: UNK
  33. RITUXIMAB [Suspect]
     Active Substance: RITUXIMAB
     Indication: Product used for unknown indication
     Dosage: UNK
  34. SINGULAIR [Suspect]
     Active Substance: MONTELUKAST SODIUM
     Indication: Product used for unknown indication
     Dosage: UNK
  35. THEOPHYLLINE [Suspect]
     Active Substance: THEOPHYLLINE
     Indication: Product used for unknown indication
  36. ACETAMINOPHEN\TRAMADOL [Suspect]
     Active Substance: ACETAMINOPHEN\TRAMADOL
     Indication: Product used for unknown indication
  37. TRAMADOL HYDROCHLORIDE [Suspect]
     Active Substance: TRAMADOL HYDROCHLORIDE
     Indication: Product used for unknown indication
     Dosage: UNK
  38. NEOMYCIN SULFATE [Concomitant]
     Active Substance: NEOMYCIN SULFATE
     Indication: Product used for unknown indication
     Dosage: UNK
  39. POLYMYXIN B SULFATE [Concomitant]
     Active Substance: POLYMYXIN B SULFATE
     Indication: Product used for unknown indication
     Dosage: UNK
  40. CEFADROXIL [Concomitant]
     Active Substance: CEFADROXIL
     Indication: Product used for unknown indication
     Dosage: UNK

REACTIONS (13)
  - Asthma [Not Recovered/Not Resolved]
  - Chest pain [Not Recovered/Not Resolved]
  - Cough [Not Recovered/Not Resolved]
  - Drug hypersensitivity [Not Recovered/Not Resolved]
  - Dyspnoea [Not Recovered/Not Resolved]
  - Malaise [Not Recovered/Not Resolved]
  - Nasal oedema [Not Recovered/Not Resolved]
  - Oedema [Not Recovered/Not Resolved]
  - Pain [Not Recovered/Not Resolved]
  - Pneumonia [Not Recovered/Not Resolved]
  - Respiratory tract infection [Not Recovered/Not Resolved]
  - Vomiting [Not Recovered/Not Resolved]
  - Wheezing [Not Recovered/Not Resolved]
